FAERS Safety Report 5755229-7 (Version None)
Quarter: 2008Q2

REPORT INFORMATION
  Report Type: 
  Country: None (occurrence: None)
  Receive Date: 20080528
  Receipt Date: 20080514
  Transmission Date: 20081010
  Serious: Yes (Hospitalization)
  Sender: FDA-Public Use
  Company Number: DSJ-2008-04428

PATIENT
  Age: 60 Year
  Sex: Male
  Weight: 65 kg

DRUGS (3)
  1. OLMESARTAN MEDOXOMIL [Suspect]
     Indication: HYPERTENSION
     Dosage: 20 MG (20 MG, 1 IN 1 D), PER ORAL
     Route: 048
     Dates: start: 20080131, end: 20080228
  2. PLAVIX [Suspect]
     Indication: PROPHYLAXIS
     Dosage: 75 MG (75 MG, 1 IN 1 D), PER ORAL
     Route: 048
     Dates: start: 20080131, end: 20080228
  3. HYDANTOL (PHENYTOIN) (PHENYTOIN) [Concomitant]

REACTIONS (3)
  - HEPATIC FUNCTION ABNORMAL [None]
  - LIVER DISORDER [None]
  - STEVENS-JOHNSON SYNDROME [None]
